FAERS Safety Report 11023212 (Version 2)
Quarter: 2015Q2

REPORT INFORMATION
  Report Type: Spontaneous
  Country: US (occurrence: US)
  Receive Date: 20150413
  Receipt Date: 20150525
  Transmission Date: 20150821
  Serious: No
  Sender: FDA-Public Use
  Company Number: US-JNJFOC-20110500205

PATIENT
  Age: 56 Year

DRUGS (2)
  1. ZETIA [Concomitant]
     Active Substance: EZETIMIBE
     Indication: HYPERLIPIDAEMIA
     Route: 065
  2. LEVAQUIN [Suspect]
     Active Substance: LEVOFLOXACIN
     Indication: SINUSITIS
     Route: 048
     Dates: start: 20090410, end: 20090420

REACTIONS (3)
  - Tendon disorder [Unknown]
  - Tendonitis [Unknown]
  - Tendon disorder [Unknown]

NARRATIVE: CASE EVENT DATE: 200904
